FAERS Safety Report 5128057-3 (Version None)
Quarter: 2006Q4

REPORT INFORMATION
  Report Type: 
  Country: None (occurrence: None)
  Receive Date: 20061010
  Receipt Date: 20060927
  Transmission Date: 20070319
  Serious: Yes (Other)
  Sender: FDA-Public Use
  Company Number: 2006117142

PATIENT
  Age: 50 Year
  Sex: Male

DRUGS (2)
  1. XALATAN [Suspect]
     Indication: GLAUCOMA
     Dosage: 3 MCG (1.5 MCG, 1 IN 1 D), INTRAOCULAR
     Route: 031
     Dates: start: 20040101
  2. XALATAN [Suspect]
     Indication: INTRAOCULAR PRESSURE INCREASED
     Dosage: 3 MCG (1.5 MCG, 1 IN 1 D), INTRAOCULAR
     Route: 031
     Dates: start: 20040101

REACTIONS (1)
  - GLAUCOMA SURGERY [None]
